FAERS Safety Report 5673910-5 (Version None)
Quarter: 2008Q2

REPORT INFORMATION
  Report Type: 
  Country: None (occurrence: None)
  Receive Date: 20080226
  Receipt Date: 20080104
  Transmission Date: 20081010
  Serious: Yes (Other)
  Sender: FDA-Public Use
  Company Number: US-JNJFOC-20071006903

PATIENT
  Age: 68 Year
  Sex: Female
  Weight: 78.9259 kg

DRUGS (11)
  1. DACOGEN [Suspect]
     Indication: MYELODYSPLASTIC SYNDROME
     Dosage: 39 MG, 1 IN 1 DAY, INTRAVENOUS
     Route: 042
     Dates: start: 20071015, end: 20071019
  2. VERAPAMIL [Concomitant]
  3. ZOLOFT [Concomitant]
  4. PREVACID [Concomitant]
  5. PREMARIN [Concomitant]
  6. ENALAPRIL MALEATE [Concomitant]
  7. LASIX [Concomitant]
  8. TRAZODONE HCL [Concomitant]
  9. ANAGRELIDE HCL [Concomitant]
  10. INVANZ (ALL OTHER THERAPEUTIC PRODUCTS) [Concomitant]
  11. POTASSIUM (POTASSIUM) [Concomitant]

REACTIONS (2)
  - CELLULITIS [None]
  - NEUTROPENIA [None]
